FAERS Safety Report 8707429 (Version 2)
Quarter: 2012Q4

REPORT INFORMATION
  Report Type: 
  Country: US (occurrence: US)
  Receive Date: 20120803
  Receipt Date: 20120918
  Transmission Date: 20130627
  Serious: No
  Sender: FDA-Public Use
  Company Number: US-ASTRAZENECA-2012SE52728

PATIENT
  Age: 52 Year
  Sex: Female
  Weight: 104.3 kg

DRUGS (2)
  1. SYMBICORT [Suspect]
     Indication: CHRONIC OBSTRUCTIVE PULMONARY DISEASE
     Dosage: 160/4.5 MCG, TWO PUFFS, BID
     Route: 055
     Dates: start: 2009
  2. SYMBICORT [Suspect]
     Indication: ASTHMA
     Dosage: 160/4.5 MCG, TWO PUFFS, BID
     Route: 055
     Dates: start: 2009

REACTIONS (5)
  - Diabetes mellitus [Unknown]
  - Limb discomfort [Unknown]
  - Blood cholesterol increased [Unknown]
  - Cough [Unknown]
  - Drug dose omission [Unknown]
